FAERS Safety Report 9068889 (Version 2)
Quarter: 2013Q1

REPORT INFORMATION
  Report Type: Spontaneous
  Country: DE (occurrence: DE)
  Receive Date: 20130128
  Receipt Date: 20130313
  Transmission Date: 20140127
  Serious: Yes (Hospitalization, Other)
  Sender: FDA-Public Use
  Company Number: PHHY2013DE007788

PATIENT
  Age: 81 Year
  Sex: Male

DRUGS (2)
  1. ACLASTA [Suspect]
     Indication: OSTEOPOROSIS
     Dosage: 5 MG, UNK
     Route: 042
     Dates: start: 20130124
  2. VICOTRAT [Concomitant]
     Indication: HYPOVITAMINOSIS
     Dosage: 10000 IU, DAILY
     Route: 030
     Dates: start: 20130124, end: 20130124

REACTIONS (6)
  - Diplegia [Unknown]
  - Urinary incontinence [Unknown]
  - Muscular weakness [Unknown]
  - Atrial fibrillation [Unknown]
  - Hypokalaemia [Unknown]
  - Dementia [Unknown]
